FAERS Safety Report 14926256 (Version 1)
Quarter: 2018Q2

REPORT INFORMATION
  Report Type: Spontaneous
  Country: US (occurrence: US)
  Receive Date: 20180523
  Receipt Date: 20180523
  Transmission Date: 20180711
  Serious: Yes (Hospitalization, Other)
  Sender: FDA-Public Use
  Company Number: US-ZYDUS-020170

PATIENT
  Age: 56 Year
  Sex: Male

DRUGS (2)
  1. BICALUTAMIDE. [Suspect]
     Active Substance: BICALUTAMIDE
     Indication: HORMONE THERAPY
     Route: 048
  2. LEUPRORELIN [Suspect]
     Active Substance: LEUPROLIDE ACETATE
     Indication: HORMONE THERAPY
     Route: 065

REACTIONS (16)
  - Neuroendocrine carcinoma [Recovered/Resolved]
  - Weight decreased [Recovered/Resolved]
  - Hypocalcaemia [Recovered/Resolved]
  - Metastases to pelvis [Recovered/Resolved]
  - Cachexia [Recovered/Resolved]
  - Hypertension [Recovered/Resolved]
  - Nodule [Recovered/Resolved]
  - Decreased appetite [Recovered/Resolved]
  - Glucose tolerance impaired [Recovered/Resolved]
  - Lymphadenopathy [Recovered/Resolved]
  - Hypokalaemia [Recovered/Resolved]
  - Hypercalcaemia [Recovered/Resolved]
  - Hypercorticoidism [Recovered/Resolved]
  - Hyperglycaemia [Recovered/Resolved]
  - Constipation [Recovered/Resolved]
  - Metastases to spinal cord [Recovered/Resolved]
